FAERS Safety Report 8884124 (Version 1)
Quarter: 2012Q4

REPORT INFORMATION
  Report Type: 
  Country: US (occurrence: US)
  Receive Date: 20121104
  Receipt Date: 20121104
  Transmission Date: 20130627
  Serious: No
  Sender: FDA-Public Use
  Company Number: US-ASTRAZENECA-2012SE80370

PATIENT
  Age: 15 Year
  Sex: Female
  Weight: 68 kg

DRUGS (5)
  1. SEROQUEL XR [Suspect]
     Indication: DEPRESSION
     Route: 048
     Dates: start: 20121001
  2. SEROQUEL XR [Suspect]
     Indication: AFFECTIVE DISORDER
     Route: 048
     Dates: start: 20121001
  3. SEROQUEL XR [Suspect]
     Indication: BIPOLAR DISORDER
     Route: 048
     Dates: start: 20121001
  4. EFFEXOR [Concomitant]
     Indication: DEPRESSION
  5. LITHIUM [Concomitant]
     Indication: DEPRESSION

REACTIONS (8)
  - Pain in jaw [Unknown]
  - Myalgia [Unknown]
  - Back pain [Unknown]
  - Oropharyngeal pain [Unknown]
  - Pain [Unknown]
  - Viral infection [Unknown]
  - Body temperature increased [Unknown]
  - Dyspnoea [Unknown]
